FAERS Safety Report 13611795 (Version 1)
Quarter: 2017Q2

REPORT INFORMATION
  Report Type: Spontaneous
  Country: US (occurrence: US)
  Receive Date: 20170605
  Receipt Date: 20170605
  Transmission Date: 20170830
  Serious: No
  Sender: FDA-Public Use
  Company Number: US-009507513-1706USA000241

PATIENT
  Age: 3 Year
  Sex: Female

DRUGS (12)
  1. INVANZ [Suspect]
     Active Substance: ERTAPENEM SODIUM
     Dosage: STEP 2: CONCENTRATION 0.02 MG/ML; 1.76 ML/H FOR 15 MIN; 0.0088 MG
  2. INVANZ [Suspect]
     Active Substance: ERTAPENEM SODIUM
     Dosage: STEP 4: CONCENTRATION 0.02 MG/ML; 8.8 ML/H FOR 15 MIN; 0.044 MG
  3. INVANZ [Suspect]
     Active Substance: ERTAPENEM SODIUM
     Dosage: STEP 6: CONCENTRATION 2 MG/ML; 0.44 ML/H FOR 15 MIN; 0.22 MG
  4. INVANZ [Suspect]
     Active Substance: ERTAPENEM SODIUM
     Dosage: STEP 8: CONCENTRATION 2 MG/ML; 1.76 ML/H FOR 15 MIN; 0.88 MG
  5. INVANZ [Suspect]
     Active Substance: ERTAPENEM SODIUM
     Dosage: STEP 10: CONCENTRATION 20 MG/ML; 0.88 ML/H FOR 15 MIN; 4.4 MG
  6. INVANZ [Suspect]
     Active Substance: ERTAPENEM SODIUM
     Indication: IMMUNE TOLERANCE INDUCTION
     Dosage: STEP 1: CONCENTRATION 0.02 MG/ML; 0.88 ML/H FOR 15 MIN; 0.0044 MG
  7. INVANZ [Suspect]
     Active Substance: ERTAPENEM SODIUM
     Dosage: STEP 7: CONCENTRATION 2 MG/ML; 0.88 ML/H FOR 15 MIN; 0.44 MG
  8. INVANZ [Suspect]
     Active Substance: ERTAPENEM SODIUM
     Dosage: STEP 9: CONCENTRATION 20 MG/ML; 0.44 ML/H FOR 15 MIN; 2.2 MG
  9. INVANZ [Suspect]
     Active Substance: ERTAPENEM SODIUM
     Dosage: STEP 11: CONCENTRATION 20 MG/ML; 1.76 ML/H FOR 15 MIN; 8.8 MG
  10. INVANZ [Suspect]
     Active Substance: ERTAPENEM SODIUM
     Dosage: STEP 12: CONCENTRATION 20 MG/ML; 3.5 ML/H FOR 174 MIN; 202.8708 MG
  11. INVANZ [Suspect]
     Active Substance: ERTAPENEM SODIUM
     Dosage: STEP 3: CONCENTRATION 0.02 MG/ML; 4.4 ML/H FOR 15 MIN; 0.022 MG
  12. INVANZ [Suspect]
     Active Substance: ERTAPENEM SODIUM
     Dosage: STEP 5: CONCENTRATION 2 MG/ML; 0.22 ML/H FOR 15 MIN; 0.11 MG

REACTIONS (1)
  - Product use in unapproved indication [Unknown]
